FAERS Safety Report 6463206-6 (Version None)
Quarter: 2009Q4

REPORT INFORMATION
  Report Type: 
  Country: None (occurrence: None)
  Receive Date: 20091123
  Receipt Date: 20060907
  Transmission Date: 20100525
  Serious: Yes (Other)
  Sender: FDA-Public Use
  Company Number: 1000010291

PATIENT
  Age: 24 Year
  Sex: Female

DRUGS (1)
  1. ESCITALOPRAM [Suspect]
     Dosage: ORAL
     Route: 048

REACTIONS (7)
  - AMNESIA [None]
  - BACK PAIN [None]
  - CONDITION AGGRAVATED [None]
  - HEADACHE [None]
  - NEURALGIA [None]
  - OEDEMA PERIPHERAL [None]
  - SUICIDAL IDEATION [None]
